FAERS Safety Report 5787956-X (Version None)
Quarter: 2008Q2

REPORT INFORMATION
  Report Type: 
  Country: None (occurrence: None)
  Receive Date: 20080625
  Receipt Date: 20080623
  Transmission Date: 20081010
  Serious: Yes (Other)
  Sender: FDA-Public Use
  Company Number: B0526448A

PATIENT
  Age: 58 Year
  Sex: Female

DRUGS (1)
  1. AVANDIA [Suspect]
     Indication: DRUG USE FOR UNKNOWN INDICATION
     Dosage: 4MG PER DAY
     Route: 065
     Dates: start: 20070925

REACTIONS (6)
  - DIZZINESS [None]
  - HYPOGLYCAEMIA [None]
  - INCREASED APPETITE [None]
  - LIP BLISTER [None]
  - NOCTURIA [None]
  - WEIGHT INCREASED [None]
